FAERS Safety Report 8928690 (Version 1)
Quarter: 2012Q4

REPORT INFORMATION
  Report Type: 
  Country: US (occurrence: US)
  Receive Date: 20121127
  Receipt Date: 20121127
  Transmission Date: 20130627
  Serious: No
  Sender: FDA-Public Use
  Company Number: US-009507513-1211USA009941

PATIENT
  Sex: Male

DRUGS (4)
  1. DULERA [Suspect]
     Dosage: 200/5 MCRG
     Dates: start: 201102
  2. XOLAIR [Concomitant]
  3. BUDESONIDE [Concomitant]
  4. PREDNISONE [Concomitant]

REACTIONS (1)
  - Myalgia [Recovered/Resolved]
